FAERS Safety Report 7935040-9 (Version None)
Quarter: 2011Q4

REPORT INFORMATION
  Report Type: 
  Country: None (occurrence: None)
  Receive Date: 20111117
  Receipt Date: 20111103
  Transmission Date: 20120403
  Serious: Yes (Death, Hospitalization, Other)
  Sender: FDA-Public Use
  Company Number: 2011MA016051

PATIENT
  Sex: Female
  Weight: 113 kg

DRUGS (10)
  1. CYPROHEPTADINE HCL [Concomitant]
  2. LISINOPRIL [Concomitant]
  3. COUMADIN [Concomitant]
  4. PREVACID [Concomitant]
  5. DIURETICS [Concomitant]
  6. LIPITOR [Concomitant]
  7. PLAVIX [Concomitant]
  8. DIGOXIN [Suspect]
     Indication: ATRIAL FIBRILLATION
     Dosage: 0.125 MG;QD;PO
     Route: 048
     Dates: start: 20070526, end: 20080101
  9. METOPROLOL [Concomitant]
  10. HYDROCHLOROTHIAZIDE [Concomitant]

REACTIONS (21)
  - TOXICITY TO VARIOUS AGENTS [None]
  - ABDOMINAL HERNIA [None]
  - HYPOPHAGIA [None]
  - ATRIAL FIBRILLATION [None]
  - ABDOMINAL PAIN LOWER [None]
  - AGITATION [None]
  - ARRHYTHMIA [None]
  - ANAEMIA [None]
  - BRADYARRHYTHMIA [None]
  - REFUSAL OF TREATMENT BY RELATIVE [None]
  - DEMENTIA [None]
  - GASTRIC DISORDER [None]
  - WEIGHT DECREASED [None]
  - LETHARGY [None]
  - DEHYDRATION [None]
  - PAIN IN EXTREMITY [None]
  - CARDIOACTIVE DRUG LEVEL INCREASED [None]
  - CARDIAC FAILURE CONGESTIVE [None]
  - TACHYCARDIA [None]
  - ANXIETY [None]
  - HYPERTENSION [None]
